FAERS Safety Report 5964983-0 (Version None)
Quarter: 2008Q4

REPORT INFORMATION
  Report Type: 
  Country: None (occurrence: None)
  Receive Date: 20081125
  Receipt Date: 20081113
  Transmission Date: 20090506
  Serious: Yes (Other)
  Sender: FDA-Public Use
  Company Number: PHEH2007US03696

PATIENT
  Sex: Male
  Weight: 63.039 kg

DRUGS (18)
  1. ZOMETA [Suspect]
     Dosage: 4 MG, QMO
     Route: 042
     Dates: start: 20060101
  2. CALCIUM [Concomitant]
  3. ARANESP [Concomitant]
     Indication: ANAEMIA
  4. ALBUTEROL [Concomitant]
  5. ATENOLOL [Concomitant]
  6. DARBEPOETIN ALFA [Concomitant]
  7. ETODOLAC [Concomitant]
  8. GABAPENTIN [Concomitant]
  9. LIDOCAINE [Concomitant]
  10. LIDOCAINE [Concomitant]
  11. LISINOPRIL [Concomitant]
  12. OMEPRAZOLE [Concomitant]
  13. TRAMADOL HCL [Concomitant]
  14. TEMAZEPAM [Concomitant]
  15. TRAZODONE HCL [Concomitant]
  16. CHEMOTHERAPEUTICS NOS [Concomitant]
  17. CLOBETASOL PROPIONATE [Concomitant]
     Dosage: 0.05 UNK, UNK
  18. CLOTRIMAZOLE [Concomitant]
     Dosage: 1 %, UNK
     Route: 061

REACTIONS (15)
  - ANXIETY [None]
  - BONE DISORDER [None]
  - CELLULITIS [None]
  - DECREASED INTEREST [None]
  - DENTAL CARE [None]
  - DENTAL CARIES [None]
  - GENERAL PHYSICAL HEALTH DETERIORATION [None]
  - MEDICAL DEVICE COMPLICATION [None]
  - OSTEITIS [None]
  - OSTEONECROSIS [None]
  - PAIN [None]
  - PAIN IN JAW [None]
  - SPINAL COMPRESSION FRACTURE [None]
  - TOOTH EXTRACTION [None]
  - TOOTH REPAIR [None]
